FAERS Safety Report 9230383 (Version 1)
Quarter: 2013Q2

REPORT INFORMATION
  Report Type: Spontaneous
  Country: DE (occurrence: None)
  Receive Date: 20130411
  Receipt Date: 20130411
  Transmission Date: 20140414
  Serious: Yes (Disabling)
  Sender: FDA-Public Use
  Company Number: TPA2013A02629

PATIENT
  Age: 58 Year
  Sex: Male

DRUGS (5)
  1. ADENURIC (FEBUXOSTAT) [Suspect]
     Indication: GOUT
     Dosage: 80 MG  ORAL
     Route: 048
     Dates: start: 20100618, end: 20121008
  2. PREDNISOLON (PREDNISOLONE) [Concomitant]
  3. DEKRISTOL (COLECALCIFEROL) [Concomitant]
  4. DIOVAN (VALSARTAN) [Concomitant]
  5. PANTOPRAZOLE (PANTOPRAZOLE) [Concomitant]

REACTIONS (1)
  - Myositis [None]
